FAERS Safety Report 10758895 (Version 1)
Quarter: 2015Q1

REPORT INFORMATION
  Report Type: Spontaneous
  Country: US (occurrence: US)
  Receive Date: 20150203
  Receipt Date: 20150203
  Transmission Date: 20150721
  Serious: No
  Sender: FDA-Public Use
  Company Number: US-PFIZER INC-2015042347

PATIENT
  Age: 66 Year
  Sex: Male

DRUGS (2)
  1. EFFEXOR [Suspect]
     Active Substance: VENLAFAXINE HYDROCHLORIDE
     Dosage: UNK
  2. BUPROPION [Suspect]
     Active Substance: BUPROPION
     Dosage: UNK

REACTIONS (1)
  - Drug hypersensitivity [Unknown]
